FAERS Safety Report 25968812 (Version 1)
Quarter: 2025Q4

REPORT INFORMATION
  Report Type: Spontaneous
  Country: US (occurrence: None)
  Receive Date: 20251027
  Receipt Date: 20251027
  Transmission Date: 20260117
  Serious: Yes (Hospitalization)
  Sender: FDA-CTU
  Company Number: None

PATIENT
  Age: 67 Year
  Weight: 89.6 kg

DRUGS (14)
  1. ENVARSUS XR [Suspect]
     Active Substance: TACROLIMUS
  2. FUROSEMIDE [Concomitant]
     Active Substance: FUROSEMIDE
  3. LANTUS SOLOSTAR PEN INJ 3ML [Concomitant]
  4. METOPROLOL TARTRATE [Concomitant]
     Active Substance: METOPROLOL TARTRATE
  5. NOVOLOG FLEXPEN INJ 3ML (ORANGE) [Concomitant]
  6. PREDNISONE 50MG (FIFTY MG) TABLETS [Concomitant]
  7. CYMBALTA 30MG CAPSULES [Concomitant]
  8. GLIPIZIDE ER 2.5MG TABLETS [Concomitant]
  9. ONE A DAY WOMEN ACTIVE MB TAB SO^S [Concomitant]
  10. ROSUVASTATIN [Concomitant]
     Active Substance: ROSUVASTATIN
  11. COLACE 100MG CAPSULES [Concomitant]
  12. CYCLOBENZAPRINE HYDROCHLORIDE [Concomitant]
     Active Substance: CYCLOBENZAPRINE HYDROCHLORIDE
  13. DILAUDID 2MG TABLETS [Concomitant]
     Indication: Renal transplant
     Dosage: FREQUENCY : DAILY;?
     Route: 048
     Dates: start: 202204
  14. MYCOPHENOLIC ACID [Suspect]
     Active Substance: MYCOPHENOLIC ACID
     Indication: Renal transplant
     Dosage: 180 MG BID  TAKEN WITH  360MG BID  ORAL
     Route: 048
     Dates: start: 202206

REACTIONS (1)
  - Pneumocystis jirovecii pneumonia [None]

NARRATIVE: CASE EVENT DATE: 20251001
